FAERS Safety Report 6541744-5 (Version None)
Quarter: 2010Q1

REPORT INFORMATION
  Report Type: 
  Country: None (occurrence: None)
  Receive Date: 20100119
  Receipt Date: 20100108
  Transmission Date: 20100710
  Serious: Yes (Other)
  Sender: FDA-Public Use
  Company Number: US-JNJFOC-20100103216

PATIENT
  Sex: Female

DRUGS (8)
  1. SIMPONI [Suspect]
     Indication: RHEUMATOID ARTHRITIS
     Route: 058
  2. SIMPONI [Suspect]
     Route: 058
  3. CALCIUM WITH VITAMIN D [Concomitant]
  4. AZATHIOPRINE [Concomitant]
  5. LISINOPRIL [Concomitant]
  6. OMEPRAZOLE [Concomitant]
     Indication: GASTRIC DISORDER
  7. FLUOXETINE [Concomitant]
     Indication: AFFECTIVE DISORDER
  8. FOLIC ACID [Concomitant]

REACTIONS (3)
  - ANKLE OPERATION [None]
  - DEVICE LEAKAGE [None]
  - INAPPROPRIATE SCHEDULE OF DRUG ADMINISTRATION [None]
